FAERS Safety Report 18080990 (Version 3)
Quarter: 2020Q3

REPORT INFORMATION
  Report Type: Spontaneous
  Country: JP (occurrence: JP)
  Receive Date: 20200728
  Receipt Date: 20200929
  Transmission Date: 20201103
  Serious: Yes (Life-Threatening, Hospitalization)
  Sender: FDA-Public Use
  Company Number: JP-DSJP-DSJ-2020-120979

PATIENT
  Age: 55 Year
  Sex: Female
  Weight: 36 kg

DRUGS (10)
  1. LANSOPRAZOLE. [Concomitant]
     Active Substance: LANSOPRAZOLE
     Dosage: 15 MG, QD
     Route: 048
     Dates: start: 20181125
  2. GRANISETRON                        /01178102/ [Concomitant]
     Active Substance: GRANISETRON
     Indication: PROPHYLAXIS OF NAUSEA AND VOMITING
     Dosage: 1 MG, QD
     Route: 050
     Dates: start: 20200619, end: 20200619
  3. E KEPPRA [Concomitant]
     Active Substance: LEVETIRACETAM
     Dosage: 500 MG, BID
     Route: 048
     Dates: start: 20181125
  4. METOCLOPRAMIDE. [Concomitant]
     Active Substance: METOCLOPRAMIDE
     Indication: NAUSEA
     Dosage: 5 MG, TID
     Route: 048
     Dates: start: 20200626, end: 20200709
  5. DEXART [Concomitant]
     Active Substance: DEXAMETHASONE SODIUM PHOSPHATE
     Indication: PROPHYLAXIS OF NAUSEA AND VOMITING
     Dosage: 6.6 MG, QD
     Route: 050
     Dates: start: 20200619, end: 20200619
  6. DESALEX [Concomitant]
     Active Substance: DESLORATADINE
     Indication: RHINITIS ALLERGIC
     Dosage: 5 MG, QD
     Route: 048
     Dates: start: 20200313
  7. ENHERTU [Suspect]
     Active Substance: FAM-TRASTUZUMAB DERUXTECAN-NXKI
     Indication: HER2 POSITIVE BREAST CANCER
     Dosage: 190 MG, ONCE EVERY 3 WK, 2020/6/19
     Route: 041
     Dates: start: 20200619
  8. SYMBICORT [Concomitant]
     Active Substance: BUDESONIDE\FORMOTEROL FUMARATE DIHYDRATE
     Dosage: 2 DF, BID
     Dates: start: 20190705
  9. ETIZOLAM [Concomitant]
     Active Substance: ETIZOLAM
     Indication: SLEEP DISORDER
     Dosage: 0.5 MG, QD
     Route: 048
     Dates: start: 20181116
  10. ENHERTU [Suspect]
     Active Substance: FAM-TRASTUZUMAB DERUXTECAN-NXKI
     Indication: INVASIVE DUCTAL BREAST CARCINOMA

REACTIONS (3)
  - Pleural effusion [Recovering/Resolving]
  - Cardiac tamponade [Recovered/Resolved]
  - Nausea [Recovered/Resolved]

NARRATIVE: CASE EVENT DATE: 20200621
